FAERS Safety Report 9744368 (Version 3)
Quarter: 2014Q2

REPORT INFORMATION
  Report Type: Spontaneous
  Country: CA (occurrence: CA)
  Receive Date: 20131210
  Receipt Date: 20140505
  Transmission Date: 20141212
  Serious: Yes (Life-Threatening, Other)
  Sender: FDA-Public Use
  Company Number: CA-009507513-1310CAN009408

PATIENT
  Age: 71 Year
  Sex: Male
  Weight: 85 kg

DRUGS (15)
  1. INVANZ [Suspect]
     Dosage: 500 MG, QD
     Route: 042
     Dates: start: 20120729, end: 20120813
  2. INSULIN [Concomitant]
     Route: 065
  3. SYNTHROID [Concomitant]
     Route: 065
  4. ASPIRIN [Concomitant]
     Route: 065
  5. CITALOPRAM [Concomitant]
     Dosage: UNK
  6. LOPRESSOR [Concomitant]
     Route: 065
  7. SENOKOT (SENNOSIDES) [Concomitant]
     Route: 065
  8. COLACE [Concomitant]
     Route: 065
  9. AMLODIPINE [Concomitant]
     Route: 065
  10. COLCHICINE [Concomitant]
     Route: 065
  11. IRBESARTAN [Concomitant]
     Route: 065
  12. CYANOCOBALAMIN [Concomitant]
     Route: 065
  13. RENAGEL [Concomitant]
     Route: 065
  14. CALCIUM (UNSPECIFIED) [Concomitant]
     Route: 065
  15. ATORVASTATIN CALCIUM [Concomitant]
     Route: 065

REACTIONS (7)
  - Balance disorder [Recovered/Resolved]
  - Hallucination [Recovered/Resolved]
  - Confusional state [Recovered/Resolved]
  - Disorientation [Recovered/Resolved]
  - Delirium [Recovered/Resolved]
  - Fall [Recovered/Resolved]
  - Restlessness [Recovered/Resolved]
